FAERS Safety Report 8428048 (Version 3)
Quarter: 2012Q4

REPORT INFORMATION
  Report Type: 
  Country: CA (occurrence: CA)
  Receive Date: 20120227
  Receipt Date: 20120907
  Transmission Date: 20130627
  Serious: Yes (Other)
  Sender: FDA-Public Use
  Company Number: CA-ROCHE-1025310

PATIENT
  Age: 41 Year
  Sex: Male

DRUGS (6)
  1. XOLAIR [Suspect]
     Indication: ASTHMA
     Route: 058
     Dates: start: 20111026
  2. PREDNISONE [Concomitant]
  3. ADVAIR [Concomitant]
  4. FLOVENT [Concomitant]
  5. SINGULAIR [Concomitant]
  6. VENTOLIN [Concomitant]

REACTIONS (6)
  - Arthralgia [Unknown]
  - Headache [Unknown]
  - Rib fracture [Unknown]
  - Hypertension [Unknown]
  - Nasopharyngitis [Recovering/Resolving]
  - Osteonecrosis [Unknown]
